FAERS Safety Report 25046640 (Version 1)
Quarter: 2025Q1

REPORT INFORMATION
  Report Type: Spontaneous
  Country: AU (occurrence: AU)
  Receive Date: 20250306
  Receipt Date: 20250306
  Transmission Date: 20250409
  Serious: Yes (Other)
  Sender: SANOFI AVENTIS
  Company Number: AU-SA-2025SA066147

PATIENT
  Age: 69 Year
  Sex: Female

DRUGS (12)
  1. AMLODIPINE [Suspect]
     Active Substance: AMLODIPINE BESYLATE
  2. LANTUS SOLOSTAR [Suspect]
     Active Substance: INSULIN GLARGINE
  3. CARBIMAZOLE [Suspect]
     Active Substance: CARBIMAZOLE
  4. OMEPRAZOLE [Suspect]
     Active Substance: OMEPRAZOLE
  5. OXYBUTYNIN CHLORIDE [Suspect]
     Active Substance: OXYBUTYNIN CHLORIDE
  6. PRASUGREL HYDROCHLORIDE [Suspect]
     Active Substance: PRASUGREL HYDROCHLORIDE
  7. RANITIDINE [Suspect]
     Active Substance: RANITIDINE
  8. SIMVASTATIN [Suspect]
     Active Substance: SIMVASTATIN
  9. TELMISARTAN [Suspect]
     Active Substance: TELMISARTAN
  10. MOCLOBEMIDE [Suspect]
     Active Substance: MOCLOBEMIDE
  11. PRAZOSIN HYDROCHLORIDE [Suspect]
     Active Substance: PRAZOSIN HYDROCHLORIDE
  12. METFORMIN HYDROCHLORIDE\VILDAGLIPTIN [Suspect]
     Active Substance: METFORMIN HYDROCHLORIDE\VILDAGLIPTIN

REACTIONS (2)
  - Leukopenia [Not Recovered/Not Resolved]
  - Neutropenia [Not Recovered/Not Resolved]

NARRATIVE: CASE EVENT DATE: 20181109
